FAERS Safety Report 7641512-7 (Version None)
Quarter: 2011Q3

REPORT INFORMATION
  Report Type: 
  Country: None (occurrence: None)
  Receive Date: 20110728
  Receipt Date: 20110720
  Transmission Date: 20111222
  Serious: Yes (Death, Hospitalization)
  Sender: FDA-Public Use
  Company Number: SE-ABBOTT-11P-150-0840569-00

PATIENT
  Age: 88 Year
  Sex: Male

DRUGS (1)
  1. VALPROATE SODIUM [Suspect]
     Indication: EPILEPSY
     Route: 048
     Dates: start: 20110329, end: 20110418

REACTIONS (3)
  - FATIGUE [None]
  - EPILEPSY [None]
  - CONFUSIONAL STATE [None]
